FAERS Safety Report 16546327 (Version 1)
Quarter: 2019Q3

REPORT INFORMATION
  Report Type: Spontaneous
  Country: US (occurrence: US)
  Receive Date: 20190709
  Receipt Date: 20190709
  Transmission Date: 20191004
  Serious: No
  Sender: FDA-Public Use
  Company Number: US-ASTELLAS-2018US038816

PATIENT
  Sex: Female

DRUGS (1)
  1. MYRBETRIQ [Suspect]
     Active Substance: MIRABEGRON
     Indication: NOCTURIA
     Dosage: UNK, ONCE DAILY (FOR SEVEN DAYS)
     Route: 065
     Dates: start: 201808

REACTIONS (2)
  - Abdominal discomfort [Recovering/Resolving]
  - Nausea [Unknown]
